FAERS Safety Report 10947572 (Version 1)
Quarter: 2015Q1

REPORT INFORMATION
  Report Type: Spontaneous
  Country: US (occurrence: None)
  Receive Date: 20150212
  Receipt Date: 20150212
  Transmission Date: 20150721
  Serious: No
  Sender: FDA-Public Use
  Company Number: TPA2011A05892

PATIENT
  Age: 8 Decade
  Sex: Male

DRUGS (2)
  1. ULORIC [Suspect]
     Active Substance: FEBUXOSTAT
     Indication: TUMOUR LYSIS SYNDROME
     Dosage: 1 IN 1 D
     Route: 048
     Dates: start: 2011, end: 2011
  2. ULORIC [Suspect]
     Active Substance: FEBUXOSTAT
     Indication: LYMPHOMA
     Dosage: 1 IN 1 D
     Route: 048
     Dates: start: 2011, end: 2011

REACTIONS (1)
  - Rash generalised [None]

NARRATIVE: CASE EVENT DATE: 2011
